FAERS Safety Report 5108395-0 (Version None)
Quarter: 2006Q3

REPORT INFORMATION
  Report Type: 
  Country: None (occurrence: None)
  Receive Date: 20060919
  Receipt Date: 20060914
  Transmission Date: 20061208
  Serious: Yes (Other)
  Sender: FDA-Public Use
  Company Number: ES-BOEHRINGER INGELHEIM PHARMACEUTICALS, INC.-2006-DE-04910GD

PATIENT
  Age: 37 Year
  Sex: Male

DRUGS (4)
  1. NEVIRAPINE [Suspect]
     Indication: HIV INFECTION
     Dates: start: 19980601, end: 19981001
  2. LAMIVUDINE [Suspect]
     Indication: HIV INFECTION
     Dates: start: 19970501, end: 19980601
  3. STAVUDINE [Suspect]
     Indication: HIV INFECTION
     Dates: start: 19980601, end: 19981001
  4. NELFINAVIR [Suspect]
     Indication: HIV INFECTION
     Dates: start: 19980601, end: 19981001

REACTIONS (4)
  - HEPATITIS B [None]
  - HEPATITIS C ANTIBODY POSITIVE [None]
  - HEPATOTOXICITY [None]
  - IMMUNE RECONSTITUTION SYNDROME [None]
